FAERS Safety Report 23635027 (Version 1)
Quarter: 2024Q1

REPORT INFORMATION
  Report Type: Spontaneous
  Country: US (occurrence: US)
  Receive Date: 20240315
  Receipt Date: 20240315
  Transmission Date: 20240409
  Serious: No
  Sender: FDA-Public Use
  Company Number: US-PADAGIS-2024PAD00332

PATIENT

DRUGS (1)
  1. BACITRACIN [Suspect]
     Active Substance: BACITRACIN
     Indication: Eye pruritus
     Dosage: UNK
     Route: 065
     Dates: start: 20240221, end: 20240222

REACTIONS (3)
  - Eye swelling [Recovering/Resolving]
  - Visual impairment [Recovering/Resolving]
  - Product use in unapproved indication [Unknown]

NARRATIVE: CASE EVENT DATE: 20240221
